FAERS Safety Report 22366314 (Version 1)
Quarter: 2023Q2

REPORT INFORMATION
  Report Type: Spontaneous
  Country: US (occurrence: US)
  Receive Date: 20230525
  Receipt Date: 20230525
  Transmission Date: 20230721
  Serious: Yes (Hospitalization, Other)
  Sender: FDA-Public Use
  Company Number: US-SUN PHARMACEUTICAL INDUSTRIES LTD-2023R1-389732

PATIENT
  Age: 57 Year
  Sex: Male

DRUGS (1)
  1. FUROSEMIDE [Suspect]
     Active Substance: FUROSEMIDE
     Indication: Glomerulonephritis membranous
     Dosage: 120 MILLIGRAM, BID
     Route: 048

REACTIONS (4)
  - Generalised oedema [Recovering/Resolving]
  - Ascites [Recovered/Resolved]
  - Blood creatinine increased [Unknown]
  - Drug resistance [Unknown]
